FAERS Safety Report 24353364 (Version 1)
Quarter: 2024Q3

REPORT INFORMATION
  Report Type: Spontaneous
  Country: CN (occurrence: CN)
  Receive Date: 20240923
  Receipt Date: 20240923
  Transmission Date: 20241016
  Serious: No
  Sender: ROCHE
  Company Number: CN-ROCHE-3461866

PATIENT

DRUGS (3)
  1. HERCEPTIN [Suspect]
     Active Substance: TRASTUZUMAB
     Indication: HER2 positive breast cancer
     Dosage: 4 WEEKS DURATION
     Route: 037
  2. HERCEPTIN [Suspect]
     Active Substance: TRASTUZUMAB
     Dosage: 4 WEEKS DURATION
     Route: 037
  3. HERCEPTIN [Suspect]
     Active Substance: TRASTUZUMAB
     Dosage: 4 WEEKS DURATION
     Route: 037

REACTIONS (4)
  - Headache [Unknown]
  - Nausea [Unknown]
  - Vomiting [Unknown]
  - Meningeal disorder [Unknown]
